FAERS Safety Report 6434166-9 (Version None)
Quarter: 2009Q4

REPORT INFORMATION
  Report Type: 
  Country: None (occurrence: None)
  Receive Date: 20091110
  Receipt Date: 20091103
  Transmission Date: 20100525
  Serious: Yes (Other)
  Sender: FDA-Public Use
  Company Number: CA-ABBOTT-09P-028-0564002-00

PATIENT
  Sex: Female
  Weight: 74.002 kg

DRUGS (13)
  1. HUMIRA [Suspect]
     Indication: RHEUMATOID ARTHRITIS
     Route: 058
     Dates: start: 20061206, end: 20071022
  2. HUMIRA [Suspect]
     Dates: start: 20071022
  3. HUMIRA [Suspect]
     Dates: end: 20090217
  4. HUMIRA [Suspect]
     Route: 058
  5. METHOTREXATE [Suspect]
     Indication: DRUG USE FOR UNKNOWN INDICATION
     Dates: end: 20081104
  6. METHOTREXATE [Suspect]
     Dates: end: 20090220
  7. METHOTREXATE [Suspect]
  8. METHOTREXATE [Suspect]
  9. SYNTHROID [Concomitant]
     Indication: DRUG USE FOR UNKNOWN INDICATION
     Route: 048
  10. HYDROCORTISONE ACETATE [Concomitant]
     Indication: FACE OEDEMA
  11. MOBICOX [Concomitant]
     Indication: DRUG USE FOR UNKNOWN INDICATION
  12. PREDNISONE [Concomitant]
     Indication: DRUG USE FOR UNKNOWN INDICATION
  13. ACTONEL [Concomitant]
     Indication: DRUG USE FOR UNKNOWN INDICATION

REACTIONS (21)
  - ABDOMINAL PAIN UPPER [None]
  - ASTHENIA [None]
  - BACK PAIN [None]
  - BLOOD IRON DECREASED [None]
  - CONDITION AGGRAVATED [None]
  - DIZZINESS [None]
  - DRY EYE [None]
  - EXTRASYSTOLES [None]
  - FATIGUE [None]
  - GASTRIC DISORDER [None]
  - HAEMOGLOBIN DECREASED [None]
  - HAND DEFORMITY [None]
  - INJECTION SITE PAIN [None]
  - JOINT SWELLING [None]
  - MUSCLE SPASMS [None]
  - PAIN [None]
  - POLLAKIURIA [None]
  - PRURITUS [None]
  - SKIN INDURATION [None]
  - SKIN SWELLING [None]
  - SWELLING FACE [None]
